FAERS Safety Report 26133080 (Version 1)
Quarter: 2025Q4

REPORT INFORMATION
  Report Type: Spontaneous
  Country: US (occurrence: US)
  Receive Date: 20251209
  Receipt Date: 20251209
  Transmission Date: 20260118
  Serious: Yes (Life-Threatening)
  Sender: MACLEODS
  Company Number: US-MLMSERVICE-20251121-PI722414-00200-1

PATIENT

DRUGS (1)
  1. LEVOTHYROXINE [Suspect]
     Active Substance: LEVOTHYROXINE
     Indication: Product used for unknown indication
     Route: 065

REACTIONS (1)
  - Adrenocortical insufficiency acute [Recovering/Resolving]
